FAERS Safety Report 5693238-7 (Version None)
Quarter: 2008Q2

REPORT INFORMATION
  Report Type: 
  Country: None (occurrence: None)
  Receive Date: 20080403
  Receipt Date: 20080324
  Transmission Date: 20081010
  Serious: Yes (Other)
  Sender: FDA-Public Use
  Company Number: PHBS2008PT03676

PATIENT
  Age: 60 Year
  Sex: Female

DRUGS (3)
  1. ZOMETA [Suspect]
     Indication: MULTIPLE MYELOMA
     Dosage: 4 MG, UNK
     Route: 042
     Dates: start: 20060515
  2. THALIDOMIDE [Concomitant]
  3. DEXAMETHASONE TAB [Concomitant]

REACTIONS (1)
  - OSTEONECROSIS [None]
